FAERS Safety Report 5737223-5 (Version None)
Quarter: 2008Q2

REPORT INFORMATION
  Report Type: 
  Country: None (occurrence: None)
  Receive Date: 20080514
  Receipt Date: 20080505
  Transmission Date: 20081010
  Serious: Yes (Hospitalization, Other)
  Sender: FDA-Public Use
  Company Number: PHBS2008GR04344

PATIENT
  Age: 54 Year
  Sex: Female

DRUGS (1)
  1. ZOMETA [Suspect]
     Indication: OSTEOPOROSIS
     Route: 048

REACTIONS (13)
  - BONE DISORDER [None]
  - GINGIVAL SWELLING [None]
  - GINGIVAL ULCERATION [None]
  - IMPAIRED HEALING [None]
  - INCORRECT ROUTE OF DRUG ADMINISTRATION [None]
  - MASTICATION DISORDER [None]
  - METASTASIS [None]
  - NO ADVERSE EVENT [None]
  - OSTEOMYELITIS [None]
  - OSTEONECROSIS [None]
  - PAIN IN JAW [None]
  - PURULENT DISCHARGE [None]
  - TOOTH EXTRACTION [None]
